FAERS Safety Report 24590354 (Version 3)
Quarter: 2025Q3

REPORT INFORMATION
  Report Type: Report from Study
  Country: MX (occurrence: MX)
  Receive Date: 20241107
  Receipt Date: 20250802
  Transmission Date: 20251021
  Serious: Yes (Other)
  Sender: ALEXION PHARMACEUTICALS
  Company Number: MX-AstraZeneca-2024A141957

PATIENT
  Age: 184 Day
  Sex: Male
  Weight: 7 kg

DRUGS (7)
  1. ESOMEPRAZOLE [Suspect]
     Active Substance: ESOMEPRAZOLE
     Indication: Product used for unknown indication
  2. PALIVIZUMAB [Suspect]
     Active Substance: PALIVIZUMAB
     Dosage: 108 MILLIGRAM/1 ML
     Dates: start: 20240614, end: 20240614
  3. PALIVIZUMAB [Suspect]
     Active Substance: PALIVIZUMAB
     Dosage: 1 MILLILITER QMONTH
     Dates: start: 20240712, end: 20240712
  4. PALIVIZUMAB [Suspect]
     Active Substance: PALIVIZUMAB
     Dosage: 1.15 MILLILITER QMONTH
     Dates: start: 20240816, end: 20240816
  5. PALIVIZUMAB [Suspect]
     Active Substance: PALIVIZUMAB
     Dosage: 1.05 MILLILITER QMONTH
     Dates: start: 20240913, end: 20240913
  6. CISAPRIDE [Concomitant]
     Active Substance: CISAPRIDE
     Indication: Gastrooesophageal reflux disease
     Dosage: 2 MILLILITER, Q8H
     Route: 065
     Dates: start: 20231213
  7. LORATADINE [Concomitant]
     Active Substance: LORATADINE
     Indication: Hypersensitivity
     Dosage: 2 MILLILITER, QD

REACTIONS (4)
  - Rash [Recovered/Resolved]
  - Injection site haemorrhage [Recovered/Resolved]
  - Milk allergy [Recovered/Resolved]
  - Pyrexia [Recovered/Resolved]

NARRATIVE: CASE EVENT DATE: 20240614
